FAERS Safety Report 5792725-0 (Version None)
Quarter: 2008Q2

REPORT INFORMATION
  Report Type: 
  Country: None (occurrence: None)
  Receive Date: 20080627
  Receipt Date: 20080623
  Transmission Date: 20081010
  Serious: Yes (Life-Threatening, Other)
  Sender: FDA-Public Use
  Company Number: GB-RANBAXY-2008RR-16065

PATIENT

DRUGS (10)
  1. FUROSEMIDE TABLETS BP 40MG [Suspect]
     Dosage: 20 MG, UNK
     Dates: start: 20071120
  2. FUROSEMIDE TABLETS BP 40MG [Suspect]
     Dosage: 40 MG, QD
  3. RAMIPRIL [Suspect]
     Indication: LEFT VENTRICULAR HYPERTROPHY
     Dosage: 2.5 MG, QD
     Route: 048
     Dates: start: 20080115, end: 20080301
  4. RAMIPRIL [Suspect]
     Dosage: 10 MG, QD
     Route: 048
     Dates: start: 20070918, end: 20080115
  5. RAMIPRIL [Suspect]
     Dosage: 5 MG, UNK
     Dates: start: 20081021
  6. DIHYDROCODEINE [Concomitant]
     Indication: PAIN
     Dosage: 60 MG, QID
     Route: 048
     Dates: start: 19910101
  7. IBUROFEN [Concomitant]
     Indication: PAIN
     Dosage: 1600 MG, QD
     Route: 048
     Dates: start: 20060101
  8. LEVOTHYROXINE SODIUM [Concomitant]
     Indication: HYPOTHYROIDISM
     Dosage: 100 UG, UNK
     Route: 048
     Dates: start: 20050101
  9. OMEPRAZOLE [Concomitant]
     Indication: PROPHYLAXIS AGAINST GASTROINTESTINAL ULCER
     Dosage: 20 MG, UNK
     Route: 048
     Dates: start: 20060101
  10. TIBOLONE [Concomitant]
     Dosage: 2.5 MG, QD
     Route: 048
     Dates: start: 19970101

REACTIONS (1)
  - BRONCHOSPASM [None]
